FAERS Safety Report 13041766 (Version 1)
Quarter: 2016Q4

REPORT INFORMATION
  Report Type: Spontaneous
  Country: US (occurrence: US)
  Receive Date: 20161219
  Receipt Date: 20161219
  Transmission Date: 20170207
  Serious: No
  Sender: FDA-Public Use
  Company Number: US-ROCHE-1434077

PATIENT
  Age: 43 Year
  Sex: Female

DRUGS (3)
  1. ZELBORAF [Suspect]
     Active Substance: VEMURAFENIB
     Route: 065
  2. ZELBORAF [Suspect]
     Active Substance: VEMURAFENIB
     Route: 065
  3. ZELBORAF [Suspect]
     Active Substance: VEMURAFENIB
     Indication: PRODUCT USED FOR UNKNOWN INDICATION
     Route: 065
     Dates: start: 20140612

REACTIONS (6)
  - Rash [Unknown]
  - Arthralgia [Unknown]
  - Pruritus [Unknown]
  - Arthralgia [Unknown]
  - Erythema [Unknown]
  - Blister [Unknown]

NARRATIVE: CASE EVENT DATE: 20140617
